FAERS Safety Report 4926907-4 (Version None)
Quarter: 2006Q1

REPORT INFORMATION
  Report Type: 
  Country: None (occurrence: None)
  Receive Date: 20060228
  Receipt Date: 20050907
  Transmission Date: 20060701
  Serious: No
  Sender: FDA-Public Use
  Company Number: US-GLAXOSMITHKLINE-A0573301A

PATIENT
  Age: 69 Year
  Sex: Female

DRUGS (5)
  1. LAMICTAL [Suspect]
     Indication: DRUG USE FOR UNKNOWN INDICATION
     Dosage: 100MG PER DAY
     Route: 048
     Dates: end: 20050701
  2. EFFEXOR [Concomitant]
  3. BUSPAR [Concomitant]
  4. ATIVAN [Concomitant]
  5. STARLIX [Concomitant]

REACTIONS (3)
  - PETECHIAE [None]
  - PRURITUS [None]
  - RASH [None]
